FAERS Safety Report 9026544 (Version 1)
Quarter: 2013Q1

REPORT INFORMATION
  Report Type: Spontaneous
  Country: US (occurrence: None)
  Receive Date: 20130107
  Receipt Date: 20130214
  Transmission Date: 20140127
  Serious: Yes (Hospitalization, Disabling)
  Sender: FDA-Public Use
  Company Number: US-JNJFOC-20121214218

PATIENT
  Age: 66 Year
  Sex: Male

DRUGS (1)
  1. DECITABINE (DECITABINE) LYOPHILIZED POWDER [Suspect]
     Indication: ACUTE MYELOID LEUKAEMIA
     Dosage: 1 IN 28 DAY
     Route: 042
     Dates: start: 20120828

REACTIONS (8)
  - Lung infection [None]
  - Febrile neutropenia [None]
  - Bronchopulmonary aspergillosis [None]
  - Fusobacterium infection [None]
  - Bacteraemia [None]
  - Thrombophlebitis superficial [None]
  - Deep vein thrombosis [None]
  - Axillary vein thrombosis [None]
